FAERS Safety Report 6182807-6 (Version None)
Quarter: 2009Q2

REPORT INFORMATION
  Report Type: 
  Country: None (occurrence: None)
  Receive Date: 20090505
  Receipt Date: 20090424
  Transmission Date: 20091009
  Serious: Yes (Death, Life-Threatening)
  Sender: FDA-Public Use
  Company Number: CERZ-1000442

PATIENT
  Age: 37 Year
  Sex: Female

DRUGS (8)
  1. CEREZYME [Suspect]
     Indication: GAUCHER'S DISEASE
     Dosage: 3200 U, Q2W, INTRAVENOUS ; 1600 U, Q2W, INTRAVENOUS
     Route: 042
     Dates: start: 19980401, end: 20090420
  2. CEREZYME [Suspect]
     Indication: GAUCHER'S DISEASE
     Dosage: 3200 U, Q2W, INTRAVENOUS ; 1600 U, Q2W, INTRAVENOUS
     Route: 042
     Dates: start: 20020101
  3. CARVEDILOL [Concomitant]
  4. LOSARTAN POTASSIUM [Concomitant]
  5. METHYLDOPA [Concomitant]
  6. ENALAPRIL MALEATE AND HYDROCHLOROTHIAZIDE [Concomitant]
  7. FUROSEMIDE [Concomitant]
  8. MONOCORDIL (ISOSORBIDE MONONITRATE) [Concomitant]

REACTIONS (4)
  - ACUTE PULMONARY OEDEMA [None]
  - HAEMODIALYSIS [None]
  - HYPERTENSION [None]
  - MYOCARDIAL INFARCTION [None]
